FAERS Safety Report 7201537-2 (Version None)
Quarter: 2010Q4

REPORT INFORMATION
  Report Type: 
  Country: None (occurrence: None)
  Receive Date: 20101229
  Receipt Date: 20101220
  Transmission Date: 20110411
  Serious: Yes (Death, Hospitalization)
  Sender: FDA-Public Use
  Company Number: IT-SANOFI-AVENTIS-2010SA078143

PATIENT
  Age: 77 Year
  Sex: Male
  Weight: 50 kg

DRUGS (11)
  1. FLUDARABINE PHOSPHATE [Suspect]
     Indication: MANTLE CELL LYMPHOMA
     Dosage: FOR FIVE DAYS EVERY 28 DAYS
     Route: 048
     Dates: start: 20100323, end: 20100327
  2. FLUDARABINE PHOSPHATE [Suspect]
     Route: 048
     Dates: end: 20100811
  3. FLUDARABINE PHOSPHATE [Suspect]
     Route: 048
  4. FLUDARABINE PHOSPHATE [Suspect]
     Route: 048
  5. FLUDARABINE PHOSPHATE [Suspect]
     Route: 048
  6. FOLIC ACID [Concomitant]
     Dates: start: 20100629
  7. VITAMIN B-12 [Concomitant]
     Dates: start: 20100629
  8. ITRACONAZOLE [Concomitant]
     Dates: start: 20100323
  9. SULFAMETHOXAZOLE AND TRIMETHOPRIM [Concomitant]
     Dates: start: 20100323
  10. FILGRASTIM [Concomitant]
     Dates: start: 20100820, end: 20100824
  11. TRANEXAMIC ACID [Concomitant]
     Dates: start: 20100820

REACTIONS (2)
  - DEATH [None]
  - PANCYTOPENIA [None]
